FAERS Safety Report 13912203 (Version 1)
Quarter: 2017Q3

REPORT INFORMATION
  Report Type: Spontaneous
  Country: US (occurrence: US)
  Receive Date: 20170828
  Receipt Date: 20170828
  Transmission Date: 20171127
  Serious: No
  Sender: FDA-Public Use
  Company Number: US-ROCHE-1141481

PATIENT
  Age: 9 Month
  Sex: Male

DRUGS (1)
  1. NUTROPIN [Suspect]
     Active Substance: SOMATROPIN
     Indication: PRODUCT USED FOR UNKNOWN INDICATION
     Route: 065

REACTIONS (6)
  - Cough [Unknown]
  - Wheezing [Unknown]
  - Lower respiratory tract congestion [Unknown]
  - Gastrooesophageal reflux disease [Unknown]
  - Vomiting [Unknown]
  - Body temperature increased [Unknown]

NARRATIVE: CASE EVENT DATE: 19850729
